FAERS Safety Report 8419698-6 (Version None)
Quarter: 2012Q2

REPORT INFORMATION
  Report Type: 
  Country: None (occurrence: None)
  Receive Date: 20120607
  Receipt Date: 20120525
  Transmission Date: 20120825
  Serious: Yes (Hospitalization, Other)
  Sender: FDA-Public Use
  Company Number: US-ELI_LILLY_AND_COMPANY-US201106002947

PATIENT
  Sex: Female
  Weight: 63.492 kg

DRUGS (3)
  1. FORTEO [Suspect]
     Dosage: UNK, UNKNOWN
     Route: 065
  2. FORTEO [Suspect]
     Indication: OSTEOPOROSIS
     Dosage: UNK UNK, UNKNOWN
     Route: 065
     Dates: end: 20110801
  3. FORTEO [Suspect]
     Dosage: UNK

REACTIONS (8)
  - TEMPOROMANDIBULAR JOINT SYNDROME [None]
  - CHEST PAIN [None]
  - HEADACHE [None]
  - HERPES ZOSTER [None]
  - CORONARY ARTERY OCCLUSION [None]
  - SOMNOLENCE [None]
  - FALL [None]
  - MALAISE [None]
